FAERS Safety Report 8002581 (Version 4)
Quarter: 2013Q1

REPORT INFORMATION
  Report Type: Spontaneous
  Country: US (occurrence: US)
  Receive Date: 20110622
  Receipt Date: 20130204
  Transmission Date: 20140127
  Serious: Yes (Hospitalization)
  Sender: FDA-Public Use
  Company Number: US-BAXTER-2011BH019850

PATIENT
  Age: 0 None
  Sex: Female
  Weight: 1.36 kg

DRUGS (4)
  1. DIANEAL LOW CALCIUM [Suspect]
     Indication: EXPOSURE DURING BREAST FEEDING
     Route: 063
     Dates: start: 20110603
  2. DIANEAL LOW CALCIUM [Suspect]
     Indication: FOETAL EXPOSURE TIMING UNSPECIFIED
  3. DIANEAL LOW CALCIUM [Suspect]
     Indication: FOETAL EXPOSURE TIMING UNSPECIFIED
     Route: 064
     Dates: start: 20110322, end: 20110603
  4. VITAMINS [Concomitant]
     Indication: PRODUCT USED FOR UNKNOWN INDICATION
     Route: 048

REACTIONS (5)
  - Premature baby [Recovering/Resolving]
  - Inguinal hernia [Unknown]
  - Feeding disorder neonatal [Recovered/Resolved]
  - Premature baby [Recovered/Resolved]
  - Exposure during breast feeding [Not Recovered/Not Resolved]
